FAERS Safety Report 9778717 (Version 1)
Quarter: 2013Q4

REPORT INFORMATION
  Report Type: Spontaneous
  Country: IT (occurrence: None)
  Receive Date: 20131219
  Receipt Date: 20131219
  Transmission Date: 20140711
  Serious: Yes (Other)
  Sender: FDA-Public Use
  Company Number: SYM-2013-14059

PATIENT
  Age: 38 Year
  Sex: Female

DRUGS (3)
  1. TETRABENAZINE [Suspect]
     Indication: HUNTINGTON^S DISEASE
     Dosage: 25MG, 3 IN 1 D
  2. QUETIAPINE [Suspect]
     Indication: HUNTINGTON^S DISEASE
     Dosage: 37.5MG 1 IN 1 D
  3. ALPRAZOLAM [Suspect]
     Indication: HUNTINGTON^S DISEASE
     Dosage: 0.625 MG, 2 IN 1 D

REACTIONS (5)
  - Suicidal behaviour [None]
  - Major depression [None]
  - Agitated depression [None]
  - Persecutory delusion [None]
  - Jealous delusion [None]
